FAERS Safety Report 5115101-2 (Version None)
Quarter: 2006Q3

REPORT INFORMATION
  Report Type: 
  Country: None (occurrence: None)
  Receive Date: 20060922
  Receipt Date: 20060828
  Transmission Date: 20061208
  Serious: Yes (Other)
  Sender: FDA-Public Use
  Company Number: 2006108268

PATIENT
  Age: 49 Year
  Sex: Male

DRUGS (2)
  1. CELEBREX [Suspect]
     Indication: ARTHRITIS
     Dosage: (200 MG, AS NECESSARY), ORAL
     Route: 048
  2. BEXTRA [Suspect]
     Indication: JOINT INJURY
     Dosage: ORAL
     Route: 048

REACTIONS (4)
  - CHEST PAIN [None]
  - CONDITION AGGRAVATED [None]
  - DEPRESSION [None]
  - ELECTROCARDIOGRAM ABNORMAL [None]
